FAERS Safety Report 21513389 (Version 1)
Quarter: 2022Q4

REPORT INFORMATION
  Report Type: Spontaneous
  Country: FR (occurrence: FR)
  Receive Date: 20221027
  Receipt Date: 20221027
  Transmission Date: 20230113
  Serious: Yes (Life-Threatening)
  Sender: FDA-Public Use
  Company Number: None

PATIENT
  Age: 30 Year
  Sex: Male
  Weight: 60 kg

DRUGS (7)
  1. ONDANSETRON [Suspect]
     Active Substance: ONDANSETRON
     Indication: Angiocardiogram
     Dosage: 2 MG, QD (SOLUTION INJECTABLE EN AMPOULE (I.V.))
     Route: 042
     Dates: start: 20191014, end: 20191014
  2. IOBITRIDOL [Concomitant]
     Active Substance: IOBITRIDOL
     Indication: Angiocardiogram
     Dosage: 1 DOSAGE FORM, QD
     Route: 042
     Dates: start: 20191014, end: 20191014
  3. HEPARIN [Concomitant]
     Active Substance: HEPARIN SODIUM
     Indication: Angiocardiogram
     Dosage: 5000 IU, QD
     Route: 042
     Dates: start: 20191014, end: 20191014
  4. VERAPAMIL HYDROCHLORIDE [Concomitant]
     Active Substance: VERAPAMIL HYDROCHLORIDE
     Indication: Angiocardiogram
     Dosage: 2.5 MG, QD
     Route: 042
     Dates: start: 20191014, end: 20191014
  5. TICAGRELOR [Concomitant]
     Active Substance: TICAGRELOR
     Indication: Angiocardiogram
     Dosage: 180 MG, QD
     Route: 048
     Dates: start: 20191014
  6. ASPIRIN DL-LYSINE [Concomitant]
     Active Substance: ASPIRIN DL-LYSINE
     Indication: Angiocardiogram
     Dosage: 250 MG, QD
     Route: 048
     Dates: start: 20191014, end: 20191014
  7. PRIMPERAN [Concomitant]
     Active Substance: METOCLOPRAMIDE HYDROCHLORIDE
     Indication: Angiocardiogram
     Dosage: 10 MG, QD (EN AMPOULE)
     Route: 042
     Dates: start: 20191014, end: 20191014

REACTIONS (3)
  - Cardio-respiratory arrest [Recovered/Resolved]
  - Anaphylactic shock [Recovered/Resolved]
  - Allergy test positive [Recovered/Resolved]

NARRATIVE: CASE EVENT DATE: 20191014
